FAERS Safety Report 6426583-8 (Version None)
Quarter: 2009Q4

REPORT INFORMATION
  Report Type: 
  Country: None (occurrence: None)
  Receive Date: 20091030
  Receipt Date: 20090511
  Transmission Date: 20100525
  Serious: Yes (Other)
  Sender: FDA-Public Use
  Company Number: CL-50-2009

PATIENT
  Sex: Male

DRUGS (2)
  1. METRONIDAZOLE [Suspect]
  2. BUTYLSCOPOLAMMONIUM [Suspect]

REACTIONS (1)
  - LINEAR IGA DISEASE [None]
